FAERS Safety Report 11994391 (Version 1)
Quarter: 2016Q1

REPORT INFORMATION
  Report Type: Spontaneous
  Country: US (occurrence: US)
  Receive Date: 20160203
  Receipt Date: 20160203
  Transmission Date: 20160526
  Serious: No
  Sender: FDA-Public Use
  Company Number: US-UCBSA-2015031536

PATIENT
  Sex: Male

DRUGS (2)
  1. KEPPRA [Suspect]
     Active Substance: LEVETIRACETAM
     Indication: PRODUCT USED FOR UNKNOWN INDICATION
     Dosage: LOWER DOSE
  2. KEPPRA [Suspect]
     Active Substance: LEVETIRACETAM
     Dosage: HIGHER DOSING

REACTIONS (3)
  - Anger [Unknown]
  - Unevaluable event [Unknown]
  - Seizure [Unknown]
